FAERS Safety Report 8327910-7 (Version None)
Quarter: 2012Q2

REPORT INFORMATION
  Report Type: 
  Country: None (occurrence: None)
  Receive Date: 20120502
  Receipt Date: 20120424
  Transmission Date: 20120825
  Serious: Yes (Hospitalization)
  Sender: FDA-Public Use
  Company Number: US-CELGENEUS-163-21880-12042700

PATIENT
  Sex: Female
  Weight: 90.8 kg

DRUGS (16)
  1. ALBUTEROL [Concomitant]
     Route: 065
  2. FLONASE [Concomitant]
     Route: 065
  3. NORCO [Concomitant]
     Route: 065
  4. CALCIUM + VITAMIN D [Concomitant]
     Route: 065
  5. I-CARNITINE [Concomitant]
     Route: 065
  6. VALTREX [Concomitant]
     Route: 065
  7. ALPHA LIPOIC [Concomitant]
     Route: 065
  8. THEOPHYLLINE [Concomitant]
     Route: 065
  9. WARFARIN SODIUM [Concomitant]
     Route: 065
  10. REVLIMID [Suspect]
     Indication: MULTIPLE MYELOMA
     Dosage: 5 MILLIGRAM
     Route: 048
     Dates: start: 20100924
  11. NYSTATIN [Concomitant]
     Route: 065
  12. WECHOL [Concomitant]
     Route: 065
  13. CITALOPRAM [Concomitant]
     Route: 065
  14. SUPER B [Concomitant]
     Route: 065
  15. ADVAIR DISKUS 100/50 [Concomitant]
     Route: 065
  16. MULTI-VITAMINS [Concomitant]
     Route: 065

REACTIONS (1)
  - HIP ARTHROPLASTY [None]
